FAERS Safety Report 4993464-6 (Version None)
Quarter: 2006Q2

REPORT INFORMATION
  Report Type: 
  Country: None (occurrence: None)
  Receive Date: 20060503
  Receipt Date: 20060503
  Transmission Date: 20061013
  Serious: Yes (Death, Hospitalization)
  Sender: FDA-Public Use
  Company Number: None

PATIENT
  Age: 86 Year
  Sex: Female

DRUGS (5)
  1. BAYER EXTRA STRENGTH BACK + BODY   EXTRA STRENGTH BAYER  -500MG ASA- [Suspect]
     Indication: ARTHRALGIA
     Dosage: 10-20 TABLETS DAILY  PO
     Route: 048
  2. BAYER REGULAR STRENGTH    REGULAR STRENGTH BAYER  -325MG ASA- [Suspect]
     Indication: ARTHRALGIA
     Dosage: 10-20 TABLETS DAILY   PO
     Route: 048
  3. EQUANIL [Concomitant]
  4. LOSARTAN POTASSIUM [Concomitant]
  5. COZAAR [Concomitant]

REACTIONS (19)
  - ANOREXIA [None]
  - ANXIETY [None]
  - ARRHYTHMIA SUPRAVENTRICULAR [None]
  - BLOOD PRESSURE INCREASED [None]
  - CONDITION AGGRAVATED [None]
  - DEPRESSED LEVEL OF CONSCIOUSNESS [None]
  - ENCEPHALOPATHY [None]
  - GASTROINTESTINAL HAEMORRHAGE [None]
  - HAEMODIALYSIS [None]
  - HYPOKALAEMIA [None]
  - MEDICATION ERROR [None]
  - MULTIPLE DRUG OVERDOSE [None]
  - PNEUMONIA ASPIRATION [None]
  - RESPIRATORY FAILURE [None]
  - RHABDOMYOLYSIS [None]
  - TACHYCARDIA [None]
  - TACHYPNOEA [None]
  - THROMBOCYTOPENIA [None]
  - TREATMENT NONCOMPLIANCE [None]
